FAERS Safety Report 9177995 (Version 1)
Quarter: 2012Q4

REPORT INFORMATION
  Report Type: 
  Country: US (occurrence: US)
  Receive Date: 20121018
  Receipt Date: 20121018
  Transmission Date: 20130627
  Serious: Yes (Life-Threatening, Hospitalization)
  Sender: FDA-Public Use
  Company Number: US-BRACCO-008719

PATIENT
  Age: 74 None
  Sex: Male
  Weight: 68 kg

DRUGS (3)
  1. MULTIHANCE [Suspect]
     Indication: NUCLEAR MAGNETIC RESONANCE IMAGING ABDOMINAL
     Route: 042
     Dates: start: 20121012, end: 20121012
  2. MULTIHANCE [Suspect]
     Indication: HYPERTENSION
     Route: 042
     Dates: start: 20121012, end: 20121012
  3. ANTIHYPERTENSIVES [Concomitant]

REACTIONS (1)
  - Cardiac arrest [Recovered/Resolved]
